FAERS Safety Report 9844546 (Version 1)
Quarter: 2014Q1

REPORT INFORMATION
  Report Type: Spontaneous
  Country: US (occurrence: None)
  Receive Date: 20140123
  Receipt Date: 20140123
  Transmission Date: 20141002
  Serious: Yes (Other)
  Sender: FDA-Public Use
  Company Number: None

PATIENT
  Age: 57 Year
  Sex: Female
  Weight: 58.97 kg

DRUGS (1)
  1. ADVAIR DISKUS [Suspect]
     Indication: ASTHMA
     Dosage: 1 DISC?TWICE DAILY ?INHALATION
     Route: 055

REACTIONS (4)
  - Asthma [None]
  - Infection [None]
  - Drug ineffective [None]
  - Hernia [None]
